FAERS Safety Report 9423966 (Version 2)
Quarter: 2013Q3

REPORT INFORMATION
  Report Type: Spontaneous
  Country: US (occurrence: US)
  Receive Date: 20130729
  Receipt Date: 20130801
  Transmission Date: 20140515
  Serious: No
  Sender: FDA-Public Use
  Company Number: US-BIOGENIDEC-2013BI068685

PATIENT
  Sex: Female

DRUGS (3)
  1. TYSABRI [Suspect]
     Indication: MULTIPLE SCLEROSIS
     Route: 042
     Dates: start: 20110818
  2. AVONEX [Concomitant]
     Indication: MULTIPLE SCLEROSIS
     Route: 030
  3. AVONEX [Concomitant]
     Indication: MULTIPLE SCLEROSIS
     Route: 030
     Dates: start: 20070708

REACTIONS (8)
  - Confusional state [Unknown]
  - Road traffic accident [Recovered/Resolved]
  - Anxiety [Unknown]
  - Poor venous access [Unknown]
  - Feeling abnormal [Unknown]
  - Muscle spasms [Unknown]
  - Gait disturbance [Unknown]
  - Joint dislocation [Unknown]
